FAERS Safety Report 7024177-7 (Version None)
Quarter: 2010Q4

REPORT INFORMATION
  Report Type: 
  Country: None (occurrence: None)
  Receive Date: 20101001
  Receipt Date: 20100929
  Transmission Date: 20110411
  Serious: Yes (Hospitalization, Other)
  Sender: FDA-Public Use
  Company Number: US-SANOFI-AVENTIS-2010SA058439

PATIENT
  Age: 82 Year
  Sex: Female

DRUGS (12)
  1. MULTAQ [Suspect]
     Indication: ATRIAL FIBRILLATION
     Route: 048
     Dates: start: 20100101
  2. WARFARIN SODIUM [Concomitant]
  3. LIPITOR [Concomitant]
  4. DILTIAZEM [Concomitant]
  5. NEXIUM [Concomitant]
  6. METOPROLOL TARTRATE [Concomitant]
  7. SYNTHROID [Concomitant]
  8. FOSAMAX [Concomitant]
  9. TYLENOL (CAPLET) [Concomitant]
  10. MULTI-VITAMINS [Concomitant]
  11. CALCIUM/VITAMIN D [Concomitant]
  12. ALL OTHER THERAPEUTIC PRODUCTS [Concomitant]

REACTIONS (3)
  - ATRIAL FIBRILLATION [None]
  - NAUSEA [None]
  - PULMONARY FIBROSIS [None]
